FAERS Safety Report 9184879 (Version 1)
Quarter: 2013Q1

REPORT INFORMATION
  Report Type: Spontaneous
  Country: US (occurrence: US)
  Receive Date: 20130325
  Receipt Date: 20130325
  Transmission Date: 20140127
  Serious: No
  Sender: FDA-Public Use
  Company Number: US-BRISTOL-MYERS SQUIBB COMPANY-16514887

PATIENT
  Age: 70 Year
  Sex: Male

DRUGS (5)
  1. ERBITUX [Suspect]
     Dosage: NO OF TREATMENTS:04
  2. MAGNESIUM [Concomitant]
  3. DOXYCYCLINE HYCLATE [Concomitant]
  4. METFORMIN [Concomitant]
  5. MULTIVITAMIN [Concomitant]

REACTIONS (4)
  - Dermatitis acneiform [Not Recovered/Not Resolved]
  - Pruritus [Unknown]
  - Dry skin [Unknown]
  - Skin fissures [Unknown]
